FAERS Safety Report 10900279 (Version 1)
Quarter: 2015Q1

REPORT INFORMATION
  Report Type: Spontaneous
  Country: FR (occurrence: None)
  Receive Date: 20150303
  Receipt Date: 20150303
  Transmission Date: 20150721
  Serious: Yes (Hospitalization)
  Sender: FDA-Public Use
  Company Number: 2756510

PATIENT
  Age: 87 Year
  Sex: Female

DRUGS (5)
  1. THALIDOMIDE [Concomitant]
     Active Substance: THALIDOMIDE
  2. PREDNISONE. [Suspect]
     Active Substance: PREDNISONE
     Indication: PLASMA CELL MYELOMA
     Dosage: 20 MG MILLIGRAM(S), 1 DAY
     Route: 048
     Dates: start: 20140405
  3. PAMIDRONIC ACID [Suspect]
     Active Substance: PAMIDRONIC ACID
     Indication: PLASMA CELL MYELOMA
     Dosage: 90 MG (1 CYCLICAL)
     Route: 041
     Dates: start: 20140703, end: 20140922
  4. ZOMETA [Suspect]
     Active Substance: ZOLEDRONIC ACID
     Indication: PLASMA CELL MYELOMA
     Dosage: 4 MG (1 CYCLICAL)
     Route: 041
     Dates: start: 20140404, end: 20140521
  5. ALKERAN [Concomitant]
     Active Substance: MELPHALAN

REACTIONS (4)
  - Abscess jaw [None]
  - Osteonecrosis of jaw [None]
  - Cellulitis [None]
  - Osteitis [None]

NARRATIVE: CASE EVENT DATE: 20140517
